FAERS Safety Report 7733698-0 (Version None)
Quarter: 2011Q3

REPORT INFORMATION
  Report Type: 
  Country: None (occurrence: None)
  Receive Date: 20110901
  Receipt Date: 20110822
  Transmission Date: 20111222
  Serious: Yes (Hospitalization)
  Sender: FDA-Public Use
  Company Number: 1000023085

PATIENT
  Age: 71 Year
  Sex: Male

DRUGS (4)
  1. ENALAPRIL MALEATE [Suspect]
  2. ASPIRIN [Concomitant]
  3. SIMVASTATIN [Concomitant]
  4. DILTIAZEM [Suspect]

REACTIONS (2)
  - ANGIOEDEMA [None]
  - NO THERAPEUTIC RESPONSE [None]
